FAERS Safety Report 24961130 (Version 1)
Quarter: 2025Q1

REPORT INFORMATION
  Report Type: Report from Study
  Country: FR (occurrence: FR)
  Receive Date: 20250212
  Receipt Date: 20250212
  Transmission Date: 20250409
  Serious: Yes (Other)
  Sender: KYOWA
  Company Number: FR-KYOWAKIRIN-2022BKK019435

PATIENT

DRUGS (1)
  1. BUROSUMAB [Suspect]
     Active Substance: BUROSUMAB
     Indication: Hereditary hypophosphataemic rickets
     Route: 065

REACTIONS (1)
  - Nephrocalcinosis [Not Recovered/Not Resolved]

NARRATIVE: CASE EVENT DATE: 20221213
